FAERS Safety Report 9440668 (Version 1)
Quarter: 2013Q3

REPORT INFORMATION
  Report Type: Other
  Country: DE (occurrence: DE)
  Receive Date: 20130805
  Receipt Date: 20130805
  Transmission Date: 20140515
  Serious: Yes (Life-Threatening, Hospitalization)
  Sender: FDA-Public Use
  Company Number: DE-SHIRE-SPV1-2010-01152

PATIENT
  Age: 26 Year
  Sex: Male
  Weight: 120.8 kg

DRUGS (2)
  1. FIRAZYR [Suspect]
     Indication: HEREDITARY ANGIOEDEMA
     Dosage: 30 MG, UNKNOWN
     Route: 058
     Dates: start: 20100520, end: 20100520
  2. FIRAZYR [Suspect]
     Dates: start: 201004, end: 201004

REACTIONS (2)
  - Acute myocardial infarction [Unknown]
  - Gastroenteritis [Recovered/Resolved]
